FAERS Safety Report 6179471-9 (Version None)
Quarter: 2009Q2

REPORT INFORMATION
  Report Type: 
  Country: None (occurrence: None)
  Receive Date: 20090505
  Receipt Date: 20090421
  Transmission Date: 20091009
  Serious: Yes (Life-Threatening, Hospitalization)
  Sender: FDA-Public Use
  Company Number: GB-ROCHE-462555

PATIENT
  Sex: Male

DRUGS (9)
  1. CAPECITABINE [Suspect]
     Route: 065
     Dates: start: 20060808, end: 20060822
  2. ERLOTINIB [Suspect]
     Route: 065
     Dates: start: 20060808, end: 20060824
  3. BEVACIZUMAB [Suspect]
     Route: 065
     Dates: start: 20060808, end: 20060822
  4. GEMCITABINE HCL [Suspect]
     Route: 065
     Dates: start: 20060808, end: 20060824
  5. METOCLOPRAMIDE [Concomitant]
  6. LANSOPRAZOLE [Concomitant]
  7. CHLORPROMAZINE [Concomitant]
  8. BENDROFLUAZIDE [Concomitant]
  9. CREAM NOS [Concomitant]

REACTIONS (10)
  - ASCITES [None]
  - DIARRHOEA [None]
  - EPISTAXIS [None]
  - HAEMATEMESIS [None]
  - HYPERBILIRUBINAEMIA [None]
  - INFECTION [None]
  - LETHARGY [None]
  - LOWER RESPIRATORY TRACT INFECTION [None]
  - MUCOSAL INFLAMMATION [None]
  - URINARY RETENTION [None]
